FAERS Safety Report 8850246 (Version 5)
Quarter: 2014Q1

REPORT INFORMATION
  Report Type: Spontaneous
  Country: FR (occurrence: FR)
  Receive Date: 20121019
  Receipt Date: 20140328
  Transmission Date: 20141002
  Serious: Yes (Death)
  Sender: FDA-Public Use
  Company Number: FR-B.I. PHARMACEUTICALS,INC./RIDGEFIELD-2012-FF-01503FF

PATIENT
  Age: 81 Year
  Sex: Female
  Weight: 49 kg

DRUGS (8)
  1. PRADAXA [Suspect]
     Indication: ATRIAL FIBRILLATION
     Dosage: 220 MG
     Route: 048
     Dates: start: 201208, end: 20121013
  2. CORDARONE [Suspect]
     Indication: ATRIAL FIBRILLATION
     Dosage: 200 MG
     Route: 048
  3. LASILIX [Concomitant]
     Route: 065
  4. INEXIUM [Concomitant]
     Route: 065
  5. PARIET [Concomitant]
     Dosage: 20 MG
     Route: 048
  6. CARDENSIEL [Concomitant]
     Dosage: 2.5 MG
     Route: 048
  7. ALPRAZOLAM [Concomitant]
     Dosage: 0.5 MG
     Route: 048
  8. DIFFU K [Concomitant]
     Dosage: 3 DF DAILY
     Route: 048

REACTIONS (6)
  - Rectal haemorrhage [Fatal]
  - Anal haemorrhage [Fatal]
  - Haemorrhagic anaemia [Fatal]
  - Anorectal disorder [Fatal]
  - Faecaloma [Unknown]
  - Constipation [Unknown]
